FAERS Safety Report 8201986-X (Version None)
Quarter: 2012Q1

REPORT INFORMATION
  Report Type: 
  Country: None (occurrence: None)
  Receive Date: 20120308
  Receipt Date: 20120229
  Transmission Date: 20120608
  Serious: Yes (Death, Other)
  Sender: FDA-Public Use
  Company Number: 2010003331

PATIENT
  Age: 73 Year
  Sex: Male

DRUGS (12)
  1. LOXONIN (LOXOPROFEN SODIUM) [Concomitant]
  2. VALTREX [Concomitant]
  3. OPSO (MORPHINE HYDROCHLORIDE) [Concomitant]
  4. VIDARABINE [Concomitant]
  5. MAGMITT (MAGNESIUM OXIDE) [Concomitant]
  6. MUCOSTA (REBAMIPIDE) [Concomitant]
  7. SIGMART (NICORANDIL) [Concomitant]
  8. OXYCONTIN [Concomitant]
  9. TAMSULOSIN HYDROCHLORIDE [Concomitant]
  10. LANSOPRAZOLE [Concomitant]
  11. TARCEVA [Suspect]
     Indication: LUNG ADENOCARCINOMA
     Dosage: 150 MG, UID/QD, ORAL
     Route: 048
     Dates: start: 20100608, end: 20100701
  12. ITOROL (ISOSORBIDE MONINITRATE) [Concomitant]

REACTIONS (11)
  - VOMITING [None]
  - LUNG CONSOLIDATION [None]
  - HAEMOPTYSIS [None]
  - INTERSTITIAL LUNG DISEASE [None]
  - LUNG DISORDER [None]
  - METASTASES TO LUNG [None]
  - DECREASED APPETITE [None]
  - PLEURAL EFFUSION [None]
  - RASH [None]
  - NAUSEA [None]
  - RIGHT ATRIAL DILATATION [None]
